FAERS Safety Report 9214091 (Version 2)
Quarter: 2013Q2

REPORT INFORMATION
  Report Type: Report from Study
  Country: DE (occurrence: DE)
  Receive Date: 20130405
  Receipt Date: 20130603
  Transmission Date: 20140414
  Serious: Yes (Life-Threatening)
  Sender: FDA-Public Use
  Company Number: DE-PFIZER INC-2013105338

PATIENT
  Age: 74 Year
  Sex: Male
  Weight: 69 kg

DRUGS (6)
  1. GEMTUZUMAB OZOGAMICIN [Suspect]
     Indication: ACUTE LEUKAEMIA
     Dosage: 5.4 MG, CYCLIC
     Dates: start: 20130309
  2. IDARUBICIN HCL [Suspect]
     Indication: ACUTE LEUKAEMIA
     Dosage: 21.72 MG, CYCLIC
     Dates: start: 20130309
  3. CYTARABINE [Suspect]
     Indication: ACUTE MYELOID LEUKAEMIA
     Dosage: 181 MG, CYCLIC
     Dates: start: 20130309
  4. ETOPOSIDE [Suspect]
     Dosage: 181 MG, CYCLIC
     Dates: start: 20130309
  5. ATRA [Concomitant]
     Indication: ACUTE LEUKAEMIA
     Dosage: 90 MG, CYCLIC
     Dates: start: 20130314, end: 20130316
  6. ATRA [Concomitant]
     Dosage: 30 MG, CYCLIC
     Dates: start: 20130317

REACTIONS (1)
  - Ileus [Recovered/Resolved]
